FAERS Safety Report 19556496 (Version 1)
Quarter: 2021Q3

REPORT INFORMATION
  Report Type: Spontaneous
  Country: US (occurrence: US)
  Receive Date: 20210714
  Receipt Date: 20210714
  Transmission Date: 20211014
  Serious: Yes (Other)
  Sender: FDA-Public Use
  Company Number: US-ASTRAZENECA-2021A609025

PATIENT
  Sex: Female
  Weight: 104.3 kg

DRUGS (7)
  1. METFORMIN [Concomitant]
     Active Substance: METFORMIN HYDROCHLORIDE
     Dosage: 500 MG 4 TABS DAILY
     Route: 065
  2. BREO ELLIPTA [Concomitant]
     Active Substance: FLUTICASONE FUROATE\VILANTEROL TRIFENATATE
     Dosage: 200?25 MCG INHALER 1 PUFF DAILY
     Route: 065
  3. AMLODIPINE [Concomitant]
     Active Substance: AMLODIPINE BESYLATE
     Route: 065
  4. WELLBUTRIN [Concomitant]
     Active Substance: BUPROPION HYDROCHLORIDE
     Route: 065
  5. ALBUTEROL INHALER [Concomitant]
     Active Substance: ALBUTEROL
     Dosage: 90 MCG 2 PUFFS EVERY 4 HRS AS NEEDED
     Route: 065
  6. FASENRA [Suspect]
     Active Substance: BENRALIZUMAB
     Indication: ASTHMA
     Route: 058
     Dates: start: 20210706, end: 20210707
  7. SYNTHROID [Concomitant]
     Active Substance: LEVOTHYROXINE SODIUM
     Dosage: 75 MCG ON MONDAY THROUGH FRIDAY BUT 88 MCG ON SATURDAY AND SUNDAY
     Route: 065

REACTIONS (5)
  - Serum sickness [Unknown]
  - Blood pressure increased [Unknown]
  - Chills [Unknown]
  - Heart rate increased [Unknown]
  - Respiratory rate increased [Unknown]
